FAERS Safety Report 5253152-8 (Version None)
Quarter: 2007Q1

REPORT INFORMATION
  Report Type: 
  Country: None (occurrence: None)
  Receive Date: 20070301
  Receipt Date: 20070227
  Transmission Date: 20070707
  Serious: Yes (Other)
  Sender: FDA-Public Use
  Company Number: DE-GLAXOSMITHKLINE-D0052014A

PATIENT
  Age: 49 Year
  Sex: Male
  Weight: 89 kg

DRUGS (2)
  1. QUILONUM RETARD [Suspect]
     Indication: AFFECT LABILITY
     Dosage: 450MG UNKNOWN
     Route: 048
     Dates: start: 20060901
  2. QUETIAPINE FUMARATE [Concomitant]
     Indication: THINKING ABNORMAL
     Dosage: 300MG UNKNOWN
     Route: 048
     Dates: start: 20060901

REACTIONS (4)
  - ERYTHEMA [None]
  - HYPERKERATOSIS [None]
  - PSORIASIS [None]
  - SKIN FISSURES [None]
